FAERS Safety Report 12745965 (Version 2)
Quarter: 2016Q4

REPORT INFORMATION
  Report Type: Spontaneous
  Country: US (occurrence: US)
  Receive Date: 20160915
  Receipt Date: 20161104
  Transmission Date: 20170207
  Serious: Yes (Other)
  Sender: FDA-Public Use
  Company Number: US-GLAXOSMITHKLINE-US2016134053

PATIENT
  Sex: Female

DRUGS (20)
  1. FISH OIL [Concomitant]
     Active Substance: FISH OIL
  2. FLECAINIDE [Concomitant]
     Active Substance: FLECAINIDE
  3. LORAZEPAM. [Concomitant]
     Active Substance: LORAZEPAM
  4. PANTOPRAZOLE [Concomitant]
     Active Substance: PANTOPRAZOLE SODIUM
  5. ALBUTEROL INHALER [Concomitant]
     Active Substance: ALBUTEROL
  6. HYDROCORTISONE CREAM [Concomitant]
     Active Substance: HYDROCORTISONE
  7. PRAVASTATIN. [Concomitant]
     Active Substance: PRAVASTATIN
  8. ADVAIR DISKUS [Suspect]
     Active Substance: FLUTICASONE PROPIONATE\SALMETEROL XINAFOATE
     Indication: CHRONIC OBSTRUCTIVE PULMONARY DISEASE
     Dosage: 250/50 MCG, 1 PUFF(S), BID
     Route: 055
  9. ADVAIR DISKUS [Suspect]
     Active Substance: FLUTICASONE PROPIONATE\SALMETEROL XINAFOATE
     Indication: ASTHMA
  10. ELIQUIS [Concomitant]
     Active Substance: APIXABAN
  11. AMITIZA [Concomitant]
     Active Substance: LUBIPROSTONE
  12. DILTIAZEM. [Concomitant]
     Active Substance: DILTIAZEM
  13. LEVALBUTEROL NEBULIZER [Concomitant]
     Active Substance: LEVALBUTEROL
  14. FLUTICASONE NASAL SPRAY [Concomitant]
     Active Substance: FLUTICASONE\FLUTICASONE PROPIONATE
  15. SPIRIVA [Concomitant]
     Active Substance: TIOTROPIUM BROMIDE MONOHYDRATE
  16. RECLAST [Concomitant]
     Active Substance: ZOLEDRONIC ACID
  17. CALCIUM [Concomitant]
     Active Substance: CALCIUM
  18. KETOCONAZOLE CREAM [Concomitant]
     Active Substance: KETOCONAZOLE
  19. MIRALAX [Concomitant]
     Active Substance: POLYETHYLENE GLYCOL 3350
  20. RANITIDINE. [Concomitant]
     Active Substance: RANITIDINE

REACTIONS (6)
  - Oesophageal candidiasis [Unknown]
  - Nasopharyngitis [Recovered/Resolved]
  - Pneumonia [Recovered/Resolved]
  - Oesophageal infection [Recovered/Resolved]
  - Candida infection [Recovered/Resolved]
  - Dyspnoea [Recovered/Resolved]

NARRATIVE: CASE EVENT DATE: 2013
